FAERS Safety Report 15630511 (Version 1)
Quarter: 2018Q4

REPORT INFORMATION
  Report Type: Spontaneous
  Country: US (occurrence: US)
  Receive Date: 20181119
  Receipt Date: 20181119
  Transmission Date: 20190205
  Serious: No
  Sender: FDA-Public Use
  Company Number: US-ASTRAZENECA-2018SF39634

PATIENT
  Age: 23337 Day
  Sex: Female

DRUGS (2)
  1. BYDUREON [Concomitant]
     Active Substance: EXENATIDE
     Route: 065
  2. BYDUREON BCISE [Suspect]
     Active Substance: EXENATIDE
     Route: 065
     Dates: start: 20181020

REACTIONS (3)
  - Needle track marks [Unknown]
  - Incorrect dose administered [Unknown]
  - Device malfunction [Unknown]

NARRATIVE: CASE EVENT DATE: 20181020
